FAERS Safety Report 8223860-5 (Version None)
Quarter: 2012Q1

REPORT INFORMATION
  Report Type: 
  Country: None (occurrence: None)
  Receive Date: 20120321
  Receipt Date: 20120315
  Transmission Date: 20120608
  Serious: Yes (Other)
  Sender: FDA-Public Use
  Company Number: JP-PFIZER INC-2012068877

PATIENT
  Age: 85 Year
  Sex: Male

DRUGS (1)
  1. VFEND [Suspect]
     Dosage: 400 MG/DAY

REACTIONS (3)
  - VOLVULUS [None]
  - INTUSSUSCEPTION [None]
  - INTESTINAL OBSTRUCTION [None]
